FAERS Safety Report 10340574 (Version 2)
Quarter: 2014Q3

REPORT INFORMATION
  Report Type: Spontaneous
  Country: CN (occurrence: CN)
  Receive Date: 20140724
  Receipt Date: 20140825
  Transmission Date: 20150326
  Serious: Yes (Other)
  Sender: FDA-Public Use
  Company Number: CN-GLAXOSMITHKLINE-B1016140A

PATIENT
  Age: 42 Year
  Sex: Male
  Weight: 55 kg

DRUGS (3)
  1. OXYMATRINE [Suspect]
     Active Substance: OXYMATRINE
     Indication: HEPATITIS B
     Route: 065
  2. INTERFERON NOS [Suspect]
     Active Substance: INTERFERON
     Indication: HEPATITIS B
     Route: 065
  3. HEPTODIN [Suspect]
     Active Substance: LAMIVUDINE
     Indication: HEPATITIS B
     Dosage: 1TAB PER DAY
     Route: 048
     Dates: start: 2004

REACTIONS (2)
  - Cholecystitis [Not Recovered/Not Resolved]
  - Perihepatic discomfort [Not Recovered/Not Resolved]

NARRATIVE: CASE EVENT DATE: 2013
